FAERS Safety Report 8481101-8 (Version None)
Quarter: 2012Q3

REPORT INFORMATION
  Report Type: 
  Country: None (occurrence: None)
  Receive Date: 20120702
  Receipt Date: 20120627
  Transmission Date: 20120928
  Serious: Yes (Other)
  Sender: FDA-Public Use
  Company Number: PHHY2009CA49578

PATIENT
  Sex: Female

DRUGS (5)
  1. SANDOSTATIN LAR [Suspect]
     Dosage: 30 MG, BIW
     Route: 030
  2. SANDOSTATIN LAR [Suspect]
     Dosage: 20 MG, BIW
     Route: 030
  3. SANDOSTATIN LAR [Suspect]
     Dosage: 30 MG, BIW
     Route: 030
  4. SANDOSTATIN LAR [Suspect]
     Indication: CARCINOID TUMOUR
     Dosage: 30 MG, EVERY 4 WEEKS
     Route: 030
     Dates: start: 20070725
  5. CHEMOTHERAPEUTICS NOS [Concomitant]

REACTIONS (12)
  - FALL [None]
  - BRONCHITIS [None]
  - NEOPLASM MALIGNANT [None]
  - FEELING ABNORMAL [None]
  - TOOTH DISORDER [None]
  - PAIN [None]
  - MALAISE [None]
  - ASTHENIA [None]
  - HEPATIC LESION [None]
  - BLOOD PRESSURE INCREASED [None]
  - INFLUENZA LIKE ILLNESS [None]
  - ALOPECIA [None]
